FAERS Safety Report 16893634 (Version 1)
Quarter: 2019Q4

REPORT INFORMATION
  Report Type: Spontaneous
  Country: GB (occurrence: GB)
  Receive Date: 20191008
  Receipt Date: 20191008
  Transmission Date: 20200122
  Serious: Yes (Hospitalization)
  Sender: FDA-Public Use
  Company Number: GB-MYLANLABS-2019M1092387

PATIENT
  Age: 51 Year
  Sex: Female

DRUGS (6)
  1. ALENDRONIC ACID [Concomitant]
     Active Substance: ALENDRONIC ACID
     Dosage: ON SAME DAY EACH WEEK.
  2. ANGELIQ [Concomitant]
     Active Substance: DROSPIRENONE\ESTRADIOL
     Dosage: 1MG/2MG
  3. OMEPRAZOLE. [Concomitant]
     Active Substance: OMEPRAZOLE
     Dosage: 20 MILLIGRAM, QD
  4. DUORESP SPIROMAX [Concomitant]
     Active Substance: BUDESONIDE\FORMOTEROL
     Dosage: 320MICROGRAMS/DOSE / 9MICROGRAMS/DOSE
     Route: 055
  5. VENTOLIN [Concomitant]
     Active Substance: ALBUTEROL SULFATE
     Dosage: PUFFS.
  6. NAPROXEN. [Suspect]
     Active Substance: NAPROXEN
     Indication: PRODUCT USED FOR UNKNOWN INDICATION
     Dosage: 1000 MILLIGRAM, QD

REACTIONS (2)
  - Upper gastrointestinal haemorrhage [Recovered/Resolved]
  - Haemoptysis [Unknown]
